FAERS Safety Report 6397635-6 (Version None)
Quarter: 2009Q4

REPORT INFORMATION
  Report Type: 
  Country: None (occurrence: None)
  Receive Date: 20091012
  Receipt Date: 20090928
  Transmission Date: 20100525
  Serious: Yes (Hospitalization)
  Sender: FDA-Public Use
  Company Number: IN-MYLANLABS-2009S1016959

PATIENT
  Age: 10 Year
  Sex: Female
  Weight: 24 kg

DRUGS (7)
  1. TRAMADOL HCL [Suspect]
     Indication: ANALGESIC THERAPY
     Route: 042
  2. ISONIAZID [Interacting]
     Indication: BONE TUBERCULOSIS
  3. RIFAMPICIN [Concomitant]
     Indication: BONE TUBERCULOSIS
  4. ETHAMBUTOL HYDROCHLORIDE [Concomitant]
     Indication: BONE TUBERCULOSIS
  5. PYRAZINAMIDE [Concomitant]
     Indication: BONE TUBERCULOSIS
  6. ONDANSETRON [Concomitant]
     Route: 042
  7. MIDAZOLAM HCL [Concomitant]
     Route: 042

REACTIONS (2)
  - DRUG INTERACTION [None]
  - GRAND MAL CONVULSION [None]
